FAERS Safety Report 17997286 (Version 2)
Quarter: 2020Q3

REPORT INFORMATION
  Report Type: Spontaneous
  Country: US (occurrence: US)
  Receive Date: 20200709
  Receipt Date: 20200809
  Transmission Date: 20201103
  Serious: No
  Sender: FDA-Public Use
  Company Number: US-009507513-2007USA001061

PATIENT
  Sex: Male

DRUGS (1)
  1. KEYTRUDA [Suspect]
     Active Substance: PEMBROLIZUMAB
     Indication: NEOPLASM OF THYMUS
     Dosage: 200 MILLIGRAM, EVERY 3 WEEKS
     Route: 042
     Dates: start: 201909

REACTIONS (13)
  - Inappropriate schedule of product administration [Unknown]
  - Psoriasis [Not Recovered/Not Resolved]
  - Feeling hot [Unknown]
  - Asthenia [Unknown]
  - Decreased activity [Unknown]
  - Sensation of blood flow [Unknown]
  - Dyspnoea [Unknown]
  - Adverse drug reaction [Unknown]
  - Nausea [Unknown]
  - Product use in unapproved indication [Unknown]
  - Drug effect less than expected [Unknown]
  - Dyspepsia [Unknown]
  - Pain [Unknown]

NARRATIVE: CASE EVENT DATE: 2019
